FAERS Safety Report 5082344-6 (Version None)
Quarter: 2006Q3

REPORT INFORMATION
  Report Type: 
  Country: None (occurrence: None)
  Receive Date: 20060817
  Receipt Date: 20060811
  Transmission Date: 20061208
  Serious: Yes (Life-Threatening)
  Sender: FDA-Public Use
  Company Number: ZA-AVENTIS-200614324EU

PATIENT
  Age: 73 Year
  Sex: Female

DRUGS (13)
  1. ENOXAPARIN SODIUM [Suspect]
     Indication: THROMBOSIS PROPHYLAXIS
     Route: 058
     Dates: start: 20060703, end: 20060703
  2. ENOXAPARIN SODIUM [Suspect]
     Route: 058
     Dates: start: 20060704, end: 20060706
  3. VOLTAREN [Concomitant]
     Indication: PAIN
     Route: 048
  4. PHARMAPRESS [Concomitant]
     Indication: HYPERTENSION
     Route: 048
  5. DIGOXIN [Concomitant]
     Indication: HYPERTENSION
     Route: 048
  6. RIDAQ [Concomitant]
     Indication: HYPERTENSION
     Route: 048
  7. KEFZOL [Concomitant]
     Route: 042
     Dates: start: 20060704
  8. MORFINE [Concomitant]
     Indication: PAIN
     Route: 030
     Dates: start: 20060704
  9. ENALAPRIL MALEATE [Concomitant]
     Indication: HYPERTENSION
     Route: 048
     Dates: start: 20060705, end: 20060706
  10. LOSEC [Concomitant]
     Route: 048
     Dates: start: 20060707
  11. ULSANIC [Concomitant]
     Route: 048
     Dates: start: 20060707
  12. ZINACEF [Concomitant]
     Route: 042
     Dates: start: 20060707
  13. FLAGYL [Concomitant]
     Route: 042
     Dates: start: 20060707

REACTIONS (2)
  - ACUTE ABDOMEN [None]
  - RENAL FAILURE [None]
